FAERS Safety Report 7998084-7 (Version None)
Quarter: 2011Q4

REPORT INFORMATION
  Report Type: 
  Country: None (occurrence: None)
  Receive Date: 20111221
  Receipt Date: 20110111
  Transmission Date: 20120403
  Serious: No
  Sender: FDA-Public Use
  Company Number: US-GLAXOSMITHKLINE-A0904974A

PATIENT
  Age: 64 Year
  Sex: Male

DRUGS (5)
  1. ACTOS [Concomitant]
  2. PRAVASTATIN [Concomitant]
  3. GEMFIBROZIL [Concomitant]
  4. LOVAZA [Suspect]
     Indication: BLOOD TRIGLYCERIDES INCREASED
     Dosage: 2CAP TWICE PER DAY
     Route: 048
     Dates: start: 20080101
  5. METFORMIN HCL [Concomitant]

REACTIONS (1)
  - BLOOD CHOLESTEROL DECREASED [None]
